FAERS Safety Report 4557965-7 (Version None)
Quarter: 2005Q1

REPORT INFORMATION
  Report Type: 
  Country: None (occurrence: None)
  Receive Date: 20050121
  Receipt Date: 20040312
  Transmission Date: 20050727
  Serious: Yes (Other)
  Sender: FDA-Public Use
  Company Number: US-BRISTOL-MYERS SQUIBB COMPANY-12531828

PATIENT
  Age: 33 Year
  Sex: Female

DRUGS (1)
  1. SERZONE [Suspect]
     Indication: MOOD SWINGS
     Route: 048
     Dates: start: 20010101, end: 20010901

REACTIONS (2)
  - AGGRESSION [None]
  - CONVULSION [None]
